FAERS Safety Report 5608377-6 (Version None)
Quarter: 2008Q1

REPORT INFORMATION
  Report Type: 
  Country: None (occurrence: None)
  Receive Date: 20080130
  Receipt Date: 20080119
  Transmission Date: 20080703
  Serious: Yes (Other)
  Sender: FDA-Public Use
  Company Number: US-PFIZER INC-2007095704

PATIENT
  Sex: Female
  Weight: 68.181 kg

DRUGS (20)
  1. CHANTIX [Suspect]
     Indication: SMOKING CESSATION THERAPY
  2. ALL OTHER THERAPEUTIC PRODUCTS [Concomitant]
     Indication: BLOOD CHOLESTEROL
  3. VITAMINS [Concomitant]
  4. ALBUTEROL [Concomitant]
     Dosage: TEXT:2 PUFFS EVERY FOUR HOURS AS NEEDED
  5. FLONASE [Concomitant]
     Dosage: TEXT:1 SPRAY IN NOSTRILS DAILY
  6. VITAMIN CAP [Concomitant]
     Dosage: TEXT:DAILY
  7. ASPIRIN [Concomitant]
     Dosage: TEXT:DAILY
  8. CITRACAL [Concomitant]
  9. K-DUR 10 [Concomitant]
  10. ERGOTAMINE [Concomitant]
     Dosage: TEXT:THREE TIMES A DAY AS NEEDED
  11. OXYCONTIN [Concomitant]
  12. LIPITOR [Concomitant]
  13. VITAMIN E [Concomitant]
     Dosage: TEXT:EVERY DAY
  14. XANAX [Concomitant]
  15. ALL OTHER THERAPEUTIC PRODUCTS [Concomitant]
     Dosage: TEXT:EVERY MONTH
  16. ASTELIN [Concomitant]
     Dosage: TEXT:2 PUFFS AT NIGHT
  17. CELEBREX [Concomitant]
  18. EFFEXOR [Concomitant]
     Route: 048
  19. NASONEX [Concomitant]
  20. SYNTHROID [Concomitant]
     Route: 048

REACTIONS (7)
  - ADVERSE EVENT [None]
  - DEPRESSION [None]
  - MALAISE [None]
  - NAUSEA [None]
  - SUICIDAL IDEATION [None]
  - WEIGHT INCREASED [None]
  - WRONG TECHNIQUE IN DRUG USAGE PROCESS [None]
